FAERS Safety Report 4327715-8 (Version None)
Quarter: 2004Q1

REPORT INFORMATION
  Report Type: 
  Country: None (occurrence: None)
  Receive Date: 20040325
  Receipt Date: 20040318
  Transmission Date: 20041129
  Serious: Yes (Other)
  Sender: FDA-Public Use
  Company Number: 2004204363US

PATIENT
  Sex: Female

DRUGS (6)
  1. XALATAN [Suspect]
     Indication: GLAUCOMA
     Dosage: SEE IMAGE
     Dates: start: 20020901, end: 20021101
  2. XALATAN [Suspect]
     Indication: GLAUCOMA
     Dosage: SEE IMAGE
     Dates: start: 20030403, end: 20030502
  3. XALATAN [Suspect]
     Indication: GLAUCOMA
     Dosage: SEE IMAGE
     Dates: start: 20031106
  4. TIMOLOL MALEATE [Concomitant]
  5. ALPHAGAN [Concomitant]
  6. BETOPTIC [Concomitant]

REACTIONS (3)
  - EYE HAEMORRHAGE [None]
  - INJURY ASPHYXIATION [None]
  - INTRAOCULAR PRESSURE INCREASED [None]
